FAERS Safety Report 6124506-2 (Version None)
Quarter: 2009Q1

REPORT INFORMATION
  Report Type: 
  Country: None (occurrence: None)
  Receive Date: 20090317
  Receipt Date: 20090317
  Transmission Date: 20090719
  Serious: Yes (Hospitalization)
  Sender: FDA-Public Use
  Company Number: None

PATIENT
  Age: 67 Year
  Sex: Female
  Weight: 61.9 kg

DRUGS (2)
  1. ZEMPLAR [Suspect]
     Indication: PANCREATIC CARCINOMA
     Dosage: 4.69 MCG/KG EVERY WEEK X 3 IV
     Route: 042
     Dates: start: 20081118, end: 20090217
  2. GEMCITABINE [Suspect]
     Indication: PANCREATIC CARCINOMA
     Dosage: 800 MG/M2 EVERY WEEK X 3 IV
     Route: 042
     Dates: start: 20081112, end: 20090218

REACTIONS (5)
  - ARTHROPATHY [None]
  - FALL [None]
  - HIP FRACTURE [None]
  - HYPOAESTHESIA [None]
  - PAIN [None]
